FAERS Safety Report 7064815-6 (Version None)
Quarter: 2010Q4

REPORT INFORMATION
  Report Type: 
  Country: None (occurrence: None)
  Receive Date: 20101021
  Receipt Date: 20101021
  Transmission Date: 20110411
  Serious: Yes (Other)
  Sender: FDA-Public Use
  Company Number: None

PATIENT
  Sex: Male
  Weight: 71.2147 kg

DRUGS (2)
  1. DEPAKOTE ER [Suspect]
     Indication: AMAUROTIC FAMILIAL IDIOCY
     Dosage: 500MG 1 PO BID PO
     Route: 048
     Dates: start: 20030201
  2. DEPAKOTE ER [Suspect]
     Indication: CONVULSION
     Dosage: 500MG 1 PO BID PO
     Route: 048
     Dates: start: 20030201

REACTIONS (2)
  - CONVULSION [None]
  - PRODUCT SUBSTITUTION ISSUE [None]
